FAERS Safety Report 16655510 (Version 1)
Quarter: 2019Q3

REPORT INFORMATION
  Report Type: Spontaneous
  Country: GB (occurrence: GB)
  Receive Date: 20190801
  Receipt Date: 20190801
  Transmission Date: 20191004
  Serious: Yes (Hospitalization, Other)
  Sender: FDA-Public Use
  Company Number: GB-LUPIN PHARMACEUTICALS INC.-2019-04746

PATIENT
  Age: 69 Year
  Sex: Female

DRUGS (1)
  1. CEFUROXIME. [Suspect]
     Active Substance: CEFUROXIME
     Indication: EYE DISORDER PROPHYLAXIS
     Dosage: 10/0.1 MILLIGRAM PER MILLILITRE INJECTION

REACTIONS (3)
  - Retinal oedema [Recovered/Resolved]
  - Incorrect dose administered [Unknown]
  - Macular detachment [Recovered/Resolved]
